FAERS Safety Report 4964432-5 (Version None)
Quarter: 2006Q1

REPORT INFORMATION
  Report Type: 
  Country: None (occurrence: None)
  Receive Date: 20060331
  Receipt Date: 20060320
  Transmission Date: 20060701
  Serious: Yes (Hospitalization)
  Sender: FDA-Public Use
  Company Number: 2006035773

PATIENT
  Age: 61 Year
  Sex: Female
  Weight: 131.5431 kg

DRUGS (6)
  1. ROLAIDS EXTRA STRENGTH (MAGNESIUM HYDROXIDE, CALCIUM CARBONATE) [Suspect]
     Indication: ABDOMINAL DISCOMFORT
     Dosage: 1 TABLET DAILY, ORAL
     Route: 048
     Dates: start: 20060204
  2. VERAPAMIL [Concomitant]
  3. ESTROGEN NOS (ESTROGEN NOS) [Concomitant]
  4. SPIRONOLACTONE [Suspect]
  5. KETOROLAC TROMETHAMINE [Concomitant]
  6. RANITIDINE HYDROCHLORIDE [Concomitant]

REACTIONS (1)
  - NEPHROLITHIASIS [None]
